FAERS Safety Report 7311796-3 (Version None)
Quarter: 2011Q1

REPORT INFORMATION
  Report Type: 
  Country: None (occurrence: None)
  Receive Date: 20110224
  Receipt Date: 20110221
  Transmission Date: 20110831
  Serious: Yes (Hospitalization, Other)
  Sender: FDA-Public Use
  Company Number: DE-PFIZER INC-2011026676

PATIENT
  Age: 75 Year
  Sex: Male

DRUGS (6)
  1. AMLODIPINE BESILATE [Suspect]
  2. VALORON N [Suspect]
  3. TAVOR [Suspect]
     Dosage: 0.5 MG, 1X/DAY
     Dates: start: 20100920, end: 20101103
  4. TAVOR [Suspect]
     Indication: SLEEP DISORDER
     Dosage: 0.25 MG, 1X/DAY
     Dates: end: 20100101
  5. TAVOR [Suspect]
     Dosage: 0.25 MG, 1X/DAY
     Dates: start: 20100501, end: 20100919
  6. TAVOR [Suspect]
     Dosage: 1 MG, 1X/DAY
     Dates: start: 20101104

REACTIONS (4)
  - THROMBOSIS [None]
  - PEYRONIE'S DISEASE [None]
  - PULMONARY EMBOLISM [None]
  - DRUG WITHDRAWAL SYNDROME [None]
